FAERS Safety Report 13551165 (Version 2)
Quarter: 2017Q2

REPORT INFORMATION
  Report Type: Spontaneous
  Country: FR (occurrence: FR)
  Receive Date: 20170516
  Receipt Date: 20170601
  Transmission Date: 20170830
  Serious: Yes (Other)
  Sender: FDA-Public Use
  Company Number: FR-GILEAD-2017-0272282

PATIENT
  Age: 27 Year
  Sex: Male
  Weight: 83 kg

DRUGS (1)
  1. EVIPLERA [Suspect]
     Active Substance: EMTRICITABINE\RILPIVIRINE\TENOFOVIR DISOPROXIL FUMARATE
     Indication: HIV INFECTION
     Dosage: UNK
     Route: 048
     Dates: start: 20140207

REACTIONS (1)
  - Cushing^s syndrome [Unknown]

NARRATIVE: CASE EVENT DATE: 201701
